FAERS Safety Report 15757079 (Version 1)
Quarter: 2018Q4

REPORT INFORMATION
  Report Type: Spontaneous
  Country: US (occurrence: US)
  Receive Date: 20181224
  Receipt Date: 20181224
  Transmission Date: 20190205
  Serious: Yes (Hospitalization)
  Sender: FDA-Public Use
  Company Number: None

PATIENT
  Age: 51 Year
  Sex: Female

DRUGS (2)
  1. ELIQUIS, MULTIVITAMIN, VIT D3 [Concomitant]
  2. CAPECITABINE. [Suspect]
     Active Substance: CAPECITABINE
     Indication: NEOPLASM MALIGNANT
     Dosage: ?          OTHER FREQUENCY:AS DIRECTED;?
     Route: 048
     Dates: start: 20180413

REACTIONS (2)
  - Intestinal obstruction [None]
  - Surgery [None]

NARRATIVE: CASE EVENT DATE: 20181201
